FAERS Safety Report 10885780 (Version 2)
Quarter: 2015Q1

REPORT INFORMATION
  Report Type: Report from Study
  Country: CA (occurrence: CA)
  Receive Date: 20150304
  Receipt Date: 20150306
  Transmission Date: 20150721
  Serious: Yes (Hospitalization, Other)
  Sender: FDA-Public Use
  Company Number: CA-ABBVIE-15K-028-1353531-00

PATIENT
  Sex: Female

DRUGS (2)
  1. HUMIRA [Suspect]
     Active Substance: ADALIMUMAB
     Indication: PRODUCT USED FOR UNKNOWN INDICATION
     Route: 058
     Dates: start: 20080605
  2. HUMIRA [Suspect]
     Active Substance: ADALIMUMAB
     Indication: PRODUCT USED FOR UNKNOWN INDICATION
     Route: 058

REACTIONS (13)
  - Arthropathy [Not Recovered/Not Resolved]
  - Spinal fracture [Not Recovered/Not Resolved]
  - Infection [Not Recovered/Not Resolved]
  - Joint effusion [Recovered/Resolved]
  - Skin necrosis [Unknown]
  - Painful respiration [Not Recovered/Not Resolved]
  - Ligament rupture [Not Recovered/Not Resolved]
  - Pneumonia [Recovered/Resolved]
  - Drug ineffective [Not Recovered/Not Resolved]
  - Infectious pleural effusion [Recovered/Resolved]
  - Localised infection [Not Recovered/Not Resolved]
  - Chest discomfort [Not Recovered/Not Resolved]
  - Injection site bruising [Unknown]

NARRATIVE: CASE EVENT DATE: 2014
